FAERS Safety Report 21702529 (Version 1)
Quarter: 2022Q4

REPORT INFORMATION
  Report Type: Spontaneous
  Country: US (occurrence: US)
  Receive Date: 20221208
  Receipt Date: 20221208
  Transmission Date: 20230113
  Serious: No
  Sender: FDA-Public Use
  Company Number: US-IBSA PHARMA INC.-2022IBS000109

PATIENT

DRUGS (2)
  1. TIROSINT [Interacting]
     Active Substance: LEVOTHYROXINE SODIUM
     Indication: Hypothyroidism
     Dosage: 13 ?G, QD
     Route: 048
     Dates: start: 20220313
  2. HYOSCYAMINE [Interacting]
     Active Substance: HYOSCYAMINE
     Indication: Product used for unknown indication
     Dosage: 0.375 MG, AS NEEDED
     Dates: start: 20220408, end: 20220408

REACTIONS (4)
  - Discomfort [Recovered/Resolved]
  - Eructation [Recovered/Resolved]
  - Chest discomfort [Recovered/Resolved]
  - Drug interaction [Unknown]

NARRATIVE: CASE EVENT DATE: 20220408
